FAERS Safety Report 4956053-5 (Version None)
Quarter: 2006Q1

REPORT INFORMATION
  Report Type: 
  Country: None (occurrence: None)
  Receive Date: 20060328
  Receipt Date: 20060227
  Transmission Date: 20060701
  Serious: Yes (Disabling)
  Sender: FDA-Public Use
  Company Number: US-MERCK-0603USA00029

PATIENT
  Age: 61 Year
  Sex: Male
  Weight: 114 kg

DRUGS (1)
  1. VIOXX [Suspect]
     Indication: ARTHRALGIA
     Route: 048
     Dates: start: 19990101, end: 20031101

REACTIONS (4)
  - CHOLECYSTECTOMY [None]
  - MYOCARDIAL INFARCTION [None]
  - OVERDOSE [None]
  - SKIN LACERATION [None]
